FAERS Safety Report 5641544-4 (Version None)
Quarter: 2008Q1

REPORT INFORMATION
  Report Type: 
  Country: None (occurrence: None)
  Receive Date: 20080227
  Receipt Date: 20071030
  Transmission Date: 20080703
  Serious: No
  Sender: FDA-Public Use
  Company Number: A0690416A

PATIENT
  Age: 58 Year
  Sex: Male
  Weight: 79 kg

DRUGS (5)
  1. NICORETTE [Suspect]
     Dates: start: 20071012
  2. LIPITOR [Concomitant]
  3. CHANTIX [Concomitant]
     Route: 048
     Dates: start: 20071003
  4. DIOVAN [Concomitant]
  5. ESTROGEN [Concomitant]

REACTIONS (1)
  - NAUSEA [None]
